FAERS Safety Report 4884871-0 (Version None)
Quarter: 2006Q1

REPORT INFORMATION
  Report Type: 
  Country: None (occurrence: None)
  Receive Date: 20060119
  Receipt Date: 20060112
  Transmission Date: 20060701
  Serious: Yes (Life-Threatening, Hospitalization)
  Sender: FDA-Public Use
  Company Number: PL-GLAXOSMITHKLINE-B0406603A

PATIENT
  Age: 66 Year
  Sex: Male

DRUGS (8)
  1. FONDAPARINUX SODIUM [Suspect]
     Indication: ACUTE MYOCARDIAL INFARCTION
     Dosage: 2.5MG PER DAY
     Route: 058
     Dates: start: 20040214
  2. ASPIRIN [Concomitant]
  3. CLOPIDOGREL [Concomitant]
  4. GLYCERYL TRINITRATE [Concomitant]
  5. METOPROLOL [Concomitant]
  6. RANITIDINE [Concomitant]
  7. SIMVASTATIN [Concomitant]
  8. NADROPARIN [Concomitant]

REACTIONS (3)
  - ABDOMINAL PAIN [None]
  - AORTIC ANEURYSM RUPTURE [None]
  - RETROPERITONEAL HAEMATOMA [None]
